FAERS Safety Report 19847497 (Version 1)
Quarter: 2021Q3

REPORT INFORMATION
  Report Type: Spontaneous
  Country: DE (occurrence: DE)
  Receive Date: 20210917
  Receipt Date: 20210917
  Transmission Date: 20211014
  Serious: Yes (Hospitalization)
  Sender: FDA-Public Use
  Company Number: DE-TEVA-2021-DE-1951977

PATIENT
  Age: 80 Year
  Sex: Female
  Weight: 70 kg

DRUGS (8)
  1. TORASEMID [Suspect]
     Active Substance: TORSEMIDE
     Dosage: 10 MILLIGRAM DAILY; 1?0?0?0
  2. ACETYLSALICYLSAURE [Suspect]
     Active Substance: ASPIRIN
     Dosage: 100 MILLIGRAM DAILY; 0?1?0?0
  3. CHLORTALIDON [Suspect]
     Active Substance: CHLORTHALIDONE
     Dosage: 25 MILLIGRAM DAILY; 1?0?0?0
  4. METOCLOPRAMID [Concomitant]
     Active Substance: METOCLOPRAMIDE
     Dosage: 30 MILLIGRAM DAILY; 1?1?1?0
  5. METAMIZOL [Concomitant]
     Active Substance: METAMIZOLE SODIUM
     Dosage: 1500 MILLIGRAM DAILY; 1?1?1?0
  6. OXERUTINE [Concomitant]
     Dosage: 3 DOSAGE FORMS DAILY; 1?1?1?0
  7. FENTANYL. [Concomitant]
     Active Substance: FENTANYL
     Dosage: 50 UG, SCHEME
  8. CANDESARTAN. [Suspect]
     Active Substance: CANDESARTAN
     Dosage: 16 MILLIGRAM DAILY; 1?0?0?0

REACTIONS (12)
  - Systemic infection [Unknown]
  - Renal impairment [Unknown]
  - Ulcer [Unknown]
  - General physical health deterioration [Unknown]
  - Hyperkalaemia [Unknown]
  - Pallor [Unknown]
  - Sepsis [Unknown]
  - Pain in extremity [Unknown]
  - Anaemia [Unknown]
  - Muscular weakness [Unknown]
  - Hypothermia [Unknown]
  - Hypotension [Unknown]
